FAERS Safety Report 17570006 (Version 1)
Quarter: 2020Q1

REPORT INFORMATION
  Report Type: Spontaneous
  Country: US (occurrence: US)
  Receive Date: 20200323
  Receipt Date: 20200323
  Transmission Date: 20200409
  Serious: No
  Sender: FDA-Public Use
  Company Number: US-AUROBINDO-AUR-APL-2019-103886

PATIENT
  Age: 26 Year
  Sex: Male
  Weight: 81.64 kg

DRUGS (1)
  1. LAMOTRIGINE TABLETS 100 MG [Suspect]
     Active Substance: LAMOTRIGINE
     Indication: SEIZURE
     Dosage: UNK (SHIELD-SHAPED AND OFF-PINK IN COLOR)
     Route: 048
     Dates: start: 20140930

REACTIONS (1)
  - Drug ineffective [Recovered/Resolved]
